FAERS Safety Report 11836491 (Version 1)
Quarter: 2015Q4

REPORT INFORMATION
  Report Type: Spontaneous
  Country: KR (occurrence: KR)
  Receive Date: 20151215
  Receipt Date: 20151215
  Transmission Date: 20160305
  Serious: Yes (Other)
  Sender: FDA-Public Use
  Company Number: KR-HQ SPECIALTY-KR-2015INT000687

PATIENT
  Age: 72 Year
  Sex: Male

DRUGS (4)
  1. CISPLATIN. [Suspect]
     Active Substance: CISPLATIN
     Indication: NON-SMALL CELL LUNG CANCER STAGE I
     Dosage: UNK
  2. CISPLATIN. [Suspect]
     Active Substance: CISPLATIN
     Indication: NEUROENDOCRINE CARCINOMA
  3. VINORELBINE [Suspect]
     Active Substance: VINORELBINE\VINORELBINE TARTRATE
     Indication: NON-SMALL CELL LUNG CANCER STAGE I
     Dosage: UNK
  4. VINORELBINE [Suspect]
     Active Substance: VINORELBINE\VINORELBINE TARTRATE
     Indication: NEUROENDOCRINE CARCINOMA

REACTIONS (10)
  - Status epilepticus [Recovering/Resolving]
  - Cognitive disorder [Recovered/Resolved]
  - Encephalitis autoimmune [Recovering/Resolving]
  - Blood sodium [Unknown]
  - Blood sodium abnormal [None]
  - Tonic convulsion [Recovering/Resolving]
  - Confusional state [Recovered/Resolved]
  - Activities of daily living impaired [Recovering/Resolving]
  - Seizure [Recovering/Resolving]
  - Language disorder [Recovered/Resolved]
